FAERS Safety Report 11832856 (Version 3)
Quarter: 2016Q1

REPORT INFORMATION
  Report Type: Spontaneous
  Country: FI (occurrence: FI)
  Receive Date: 20151214
  Receipt Date: 20160203
  Transmission Date: 20160525
  Serious: No
  Sender: FDA-Public Use
  Company Number: FI-JNJFOC-20150622168

PATIENT
  Sex: Male
  Weight: 86.18 kg

DRUGS (1)
  1. DUROGESIC [Suspect]
     Active Substance: FENTANYL
     Indication: PRODUCT USED FOR UNKNOWN INDICATION
     Route: 062

REACTIONS (9)
  - Withdrawal syndrome [Unknown]
  - Drug dose omission [Unknown]
  - Product quality issue [Unknown]
  - Erythema [Unknown]
  - Drug ineffective [Unknown]
  - Application site burn [Recovered/Resolved]
  - Physical product label issue [Unknown]
  - Product tampering [Unknown]
  - Product quality issue [Unknown]

NARRATIVE: CASE EVENT DATE: 2015
